FAERS Safety Report 11855244 (Version 1)
Quarter: 2015Q4

REPORT INFORMATION
  Report Type: Spontaneous
  Country: GB (occurrence: GB)
  Receive Date: 20151221
  Receipt Date: 20151221
  Transmission Date: 20160305
  Serious: Yes (Other)
  Sender: FDA-Public Use
  Company Number: GB-WATSON-2015-15860

PATIENT
  Age: 52 Year
  Sex: Female
  Weight: 101.6 kg

DRUGS (1)
  1. FLUOXETINE [Suspect]
     Active Substance: FLUOXETINE HYDROCHLORIDE
     Indication: DEPRESSION
     Dosage: 20 MG, DAILY
     Route: 048
     Dates: start: 20150510

REACTIONS (5)
  - Bruxism [Recovered/Resolved]
  - Malaise [Recovered/Resolved]
  - Nausea [Recovered/Resolved]
  - Female orgasmic disorder [Recovered/Resolved]
  - Disturbance in sexual arousal [Recovered/Resolved]

NARRATIVE: CASE EVENT DATE: 20150516
